FAERS Safety Report 4572089-0 (Version None)
Quarter: 2005Q1

REPORT INFORMATION
  Report Type: 
  Country: None (occurrence: None)
  Receive Date: 20050202
  Receipt Date: 20050117
  Transmission Date: 20050727
  Serious: Yes (Hospitalization, Other)
  Sender: FDA-Public Use
  Company Number: USA050188526

PATIENT
  Age: 58 Year
  Sex: Female
  Weight: 77 kg

DRUGS (4)
  1. HUMULIN 70/30 [Suspect]
     Indication: DIABETES MELLITUS
     Dosage: 105 U DAY
     Dates: start: 19890101
  2. GLUCOTROL [Concomitant]
  3. AVANDIA [Concomitant]
  4. GLYBURIDE [Concomitant]

REACTIONS (5)
  - CATARACT [None]
  - COLON CANCER [None]
  - EYE DISORDER [None]
  - PHARMACEUTICAL PRODUCT COMPLAINT [None]
  - PULMONARY MASS [None]
